FAERS Safety Report 11779349 (Version 2)
Quarter: 2015Q4

REPORT INFORMATION
  Report Type: Spontaneous
  Country: CA (occurrence: CA)
  Receive Date: 20151125
  Receipt Date: 20151209
  Transmission Date: 20160304
  Serious: Yes (Death, Other)
  Sender: FDA-Public Use
  Company Number: CA-GILEAD-2015-0183714

PATIENT
  Age: 58 Year

DRUGS (1)
  1. HARVONI [Suspect]
     Active Substance: LEDIPASVIR\SOFOSBUVIR
     Indication: PRODUCT USED FOR UNKNOWN INDICATION
     Dosage: UNK
     Route: 065
     Dates: start: 20150728

REACTIONS (1)
  - Death [Fatal]

NARRATIVE: CASE EVENT DATE: 20151112
